FAERS Safety Report 9331603 (Version 3)
Quarter: 2013Q3

REPORT INFORMATION
  Report Type: Spontaneous
  Country: FR (occurrence: FR)
  Receive Date: 20130605
  Receipt Date: 20130730
  Transmission Date: 20140515
  Serious: Yes (Hospitalization, Other)
  Sender: FDA-Public Use
  Company Number: FR-JNJFOC-20130522609

PATIENT
  Age: 68 Year
  Sex: Female

DRUGS (5)
  1. YONDELIS [Suspect]
     Indication: ADENOCARCINOMA
     Dosage: CYCLE 3
     Route: 042
     Dates: start: 20130510
  2. YONDELIS [Suspect]
     Indication: ADENOCARCINOMA
     Dosage: CYCLE 2
     Route: 042
     Dates: start: 20130418
  3. YONDELIS [Suspect]
     Indication: ADENOCARCINOMA
     Dosage: CYCLE 1
     Route: 042
     Dates: start: 20130328
  4. CAELYX [Suspect]
     Indication: ADENOCARCINOMA
     Dosage: THIRD INFUSION
     Route: 042
  5. LEVOTHYROX [Concomitant]
     Indication: HYPOTHYROIDISM
     Route: 065

REACTIONS (1)
  - Rhabdomyolysis [Recovered/Resolved]
